FAERS Safety Report 10216994 (Version 1)
Quarter: 2014Q2

REPORT INFORMATION
  Report Type: Spontaneous
  Country: PL (occurrence: PL)
  Receive Date: 20140604
  Receipt Date: 20140604
  Transmission Date: 20141212
  Serious: Yes (Other)
  Sender: FDA-Public Use
  Company Number: PL-BAXTER-2014BAX027636

PATIENT
  Age: 6 Year
  Sex: Female
  Weight: 31 kg

DRUGS (5)
  1. KIOVIG 100 MG/ML SOLUTION FOR INFUSION [Suspect]
     Indication: ENCEPHALITIS
     Route: 042
     Dates: start: 20140312, end: 20140312
  2. KIOVIG 100 MG/ML SOLUTION FOR INFUSION [Suspect]
     Indication: MYELITIS
  3. KIOVIG 100 MG/ML SOLUTION FOR INFUSION [Suspect]
     Indication: ENCEPHALOMYELITIS
  4. KIOVIG 100 MG/ML SOLUTION FOR INFUSION [Suspect]
     Indication: OFF LABEL USE
  5. HYDROCORTISONUM [Concomitant]
     Indication: PREMEDICATION
     Route: 042
     Dates: start: 20140312, end: 20140312

REACTIONS (5)
  - Tachycardia [Recovered/Resolved]
  - Cyanosis [Recovered/Resolved]
  - Respiratory disorder [Recovered/Resolved]
  - Anxiety [Recovered/Resolved]
  - Fear [Recovered/Resolved]
